FAERS Safety Report 14446143 (Version 2)
Quarter: 2018Q2

REPORT INFORMATION
  Report Type: Spontaneous
  Country: FR (occurrence: FR)
  Receive Date: 20180126
  Receipt Date: 20180503
  Transmission Date: 20180711
  Serious: Yes (Other)
  Sender: FDA-Public Use
  Company Number: FR-ASTRAZENECA-2018SE09666

PATIENT
  Age: 76 Year
  Sex: Female
  Weight: 56 kg

DRUGS (4)
  1. IRESSA [Suspect]
     Active Substance: GEFITINIB
     Indication: LUNG ADENOCARCINOMA
     Route: 048
     Dates: start: 20171128
  2. IRESSA [Suspect]
     Active Substance: GEFITINIB
     Indication: LUNG ADENOCARCINOMA
     Dosage: TREATMENT WITH DECREASED DOSAGE AT ONE TABLET EVERY SECOND DAY
     Route: 048
     Dates: end: 201712
  3. IRESSA [Suspect]
     Active Substance: GEFITINIB
     Indication: LUNG ADENOCARCINOMA
     Route: 048
     Dates: end: 201712
  4. FEMARA [Concomitant]
     Active Substance: LETROZOLE
     Indication: BREAST CANCER
     Dates: start: 2013

REACTIONS (10)
  - Malignant neoplasm progression [Not Recovered/Not Resolved]
  - Skin toxicity [Recovering/Resolving]
  - Hepatotoxicity [Recovering/Resolving]
  - Nail toxicity [Unknown]
  - Drug-induced liver injury [Unknown]
  - Arthralgia [Unknown]
  - Mucosal toxicity [Unknown]
  - Dry skin [Unknown]
  - Ocular toxicity [Unknown]
  - Asthenia [Recovering/Resolving]

NARRATIVE: CASE EVENT DATE: 201711
